FAERS Safety Report 5084340-1 (Version None)
Quarter: 2006Q3

REPORT INFORMATION
  Report Type: 
  Country: None (occurrence: None)
  Receive Date: 20060817
  Receipt Date: 20060817
  Transmission Date: 20061208
  Serious: Yes (Death, Life-Threatening, Hospitalization)
  Sender: FDA-Public Use
  Company Number: None

PATIENT
  Sex: Male
  Weight: 26.7622 kg

DRUGS (3)
  1. NUTROPIN [Suspect]
  2. SYNTHROID [Suspect]
  3. CORTEF [Suspect]

REACTIONS (12)
  - CARDIO-RESPIRATORY ARREST [None]
  - COMA [None]
  - DIARRHOEA [None]
  - FEELING COLD [None]
  - GASTROENTERITIS [None]
  - INCOHERENT [None]
  - INSOMNIA [None]
  - LETHARGY [None]
  - LIVEDO RETICULARIS [None]
  - PUPIL FIXED [None]
  - PYREXIA [None]
  - VOMITING [None]
